FAERS Safety Report 5536832-6 (Version None)
Quarter: 2007Q4

REPORT INFORMATION
  Report Type: 
  Country: None (occurrence: None)
  Receive Date: 20071206
  Receipt Date: 20070322
  Transmission Date: 20080405
  Serious: Yes (Other)
  Sender: FDA-Public Use
  Company Number: US-AMGEN-STX184910

PATIENT
  Sex: Male
  Weight: 84.4 kg

DRUGS (3)
  1. ENBREL [Suspect]
     Indication: RHEUMATOID ARTHRITIS
     Route: 058
     Dates: start: 20041201, end: 20050501
  2. REMICADE [Concomitant]
     Route: 065
     Dates: start: 20010601, end: 20041101
  3. REMICADE [Concomitant]
     Dates: start: 20050601

REACTIONS (1)
  - CHRONIC LYMPHOCYTIC LEUKAEMIA [None]
